FAERS Safety Report 9253906 (Version 2)
Quarter: 2013Q2

REPORT INFORMATION
  Report Type: Spontaneous
  Country: US (occurrence: US)
  Receive Date: 20130425
  Receipt Date: 20130510
  Transmission Date: 20140414
  Serious: Yes (Hospitalization)
  Sender: FDA-Public Use
  Company Number: US-BAYER-2013-050243

PATIENT
  Age: 47 Year
  Sex: Female

DRUGS (6)
  1. YAZ [Suspect]
     Indication: DYSFUNCTIONAL UTERINE BLEEDING
  2. OCELLA [Suspect]
  3. CELEXA [Concomitant]
  4. SYNTHROID [Concomitant]
  5. IBUPROFEN [Concomitant]
  6. LUNESTA [Concomitant]

REACTIONS (2)
  - Pulmonary embolism [Recovered/Resolved]
  - Deep vein thrombosis [Recovered/Resolved]
